FAERS Safety Report 5272511-0 (Version None)
Quarter: 2007Q1

REPORT INFORMATION
  Report Type: 
  Country: None (occurrence: None)
  Receive Date: 20070322
  Receipt Date: 20061006
  Transmission Date: 20070707
  Serious: No
  Sender: FDA-Public Use
  Company Number: US-BRISTOL-MYERS SQUIBB COMPANY-13459599

PATIENT
  Age: 54 Year
  Sex: Female
  Weight: 50 kg

DRUGS (6)
  1. KENALOG-10 [Suspect]
     Indication: MUSCLE TWITCHING
     Route: 059
     Dates: start: 20060509
  2. BOTOX [Suspect]
     Dates: start: 20060506
  3. TRILEPTAL [Concomitant]
  4. PREMARIN [Concomitant]
  5. LAMICTAL [Concomitant]
  6. LIDOCAINE [Concomitant]
     Route: 059
     Dates: start: 20060509

REACTIONS (3)
  - ALOPECIA [None]
  - FAT ATROPHY [None]
  - INJECTION SITE ATROPHY [None]
